FAERS Safety Report 7085261-5 (Version None)
Quarter: 2010Q4

REPORT INFORMATION
  Report Type: 
  Country: None (occurrence: None)
  Receive Date: 20101028
  Receipt Date: 20101022
  Transmission Date: 20110411
  Serious: Yes (Hospitalization)
  Sender: FDA-Public Use
  Company Number: WAES 1010DEU00083

PATIENT
  Age: 59 Year
  Sex: Female

DRUGS (16)
  1. CAP VORINOSTAT [Suspect]
     Indication: T-CELL LYMPHOMA
     Dosage: (400 MG/DAILY) (300 MG/DAILY) (400 MG/DAILY) (300 MG/DAILY)
     Route: 048
     Dates: start: 20090116, end: 20090526
  2. CAP VORINOSTAT [Suspect]
     Indication: T-CELL LYMPHOMA
     Dosage: (400 MG/DAILY) (300 MG/DAILY) (400 MG/DAILY) (300 MG/DAILY)
     Route: 048
     Dates: start: 20090527, end: 20100120
  3. CAP VORINOSTAT [Suspect]
     Indication: T-CELL LYMPHOMA
     Dosage: (400 MG/DAILY) (300 MG/DAILY) (400 MG/DAILY) (300 MG/DAILY)
     Route: 048
     Dates: start: 20100121, end: 20101020
  4. CAP VORINOSTAT [Suspect]
     Indication: T-CELL LYMPHOMA
     Dosage: (400 MG/DAILY) (300 MG/DAILY) (400 MG/DAILY) (300 MG/DAILY)
     Route: 048
     Dates: start: 20100122, end: 20101021
  5. ALISKIREN FUMARATE (+) HYDROCHLOROTHIAZI [Concomitant]
  6. AMLODIPINE BESYLATE [Concomitant]
  7. ATORVASTATIN CALCIUM [Concomitant]
  8. CORTICOSTEROIDS (UNSPECIFIED) [Concomitant]
  9. DIMETHINDENE MALEATE [Concomitant]
  10. EZETIMIBE [Concomitant]
  11. FENOFIBRATE [Concomitant]
  12. LEVOTHYROXINE SODIUM [Concomitant]
  13. LISINOPRIL [Concomitant]
  14. METOPROLOL TARTRATE [Concomitant]
  15. OMEPRAZOLE [Concomitant]
  16. REPAGLINIDE [Concomitant]

REACTIONS (1)
  - BRONCHIAL CARCINOMA [None]
